FAERS Safety Report 17101984 (Version 1)
Quarter: 2019Q4

REPORT INFORMATION
  Report Type: Spontaneous
  Country: CA (occurrence: CA)
  Receive Date: 20191202
  Receipt Date: 20191202
  Transmission Date: 20200122
  Serious: Yes (Other)
  Sender: FDA-Public Use
  Company Number: CA-CELGENEUS-CAN-20191109721

PATIENT
  Sex: Male

DRUGS (2)
  1. TALTZ [Concomitant]
     Active Substance: IXEKIZUMAB
     Indication: PRODUCT USED FOR UNKNOWN INDICATION
     Route: 065
     Dates: start: 201902, end: 20191125
  2. OTEZLA [Suspect]
     Active Substance: APREMILAST
     Indication: PSORIATIC ARTHROPATHY
     Route: 048
     Dates: start: 20191007, end: 20191125

REACTIONS (3)
  - Immunosuppression [Not Recovered/Not Resolved]
  - Arthritis infective [Not Recovered/Not Resolved]
  - Arthritis infective [Unknown]

NARRATIVE: CASE EVENT DATE: 2019
